FAERS Safety Report 21061066 (Version 3)
Quarter: 2022Q4

REPORT INFORMATION
  Report Type: Spontaneous
  Country: US (occurrence: US)
  Receive Date: 20220709
  Receipt Date: 20221123
  Transmission Date: 20230113
  Serious: No
  Sender: FDA-Public Use
  Company Number: US-SA-SAC20220704001577

PATIENT
  Age: 4 Year
  Sex: Male

DRUGS (2)
  1. ELOCTATE [Suspect]
     Active Substance: EFMOROCTOCOG ALFA
     Dosage: 895 U, BIW; 895 UNITS (+/-10%)
     Route: 042
  2. ELOCTATE [Suspect]
     Active Substance: EFMOROCTOCOG ALFA
     Dosage: 895 U, BIW; 895 UNITS (+/-10%)
     Route: 042

REACTIONS (5)
  - Head injury [Unknown]
  - Lip swelling [Unknown]
  - Tooth injury [Unknown]
  - Tooth loss [Recovered/Resolved]
  - Face injury [Recovered/Resolved]

NARRATIVE: CASE EVENT DATE: 20220628
